FAERS Safety Report 9777532 (Version 1)
Quarter: 2013Q4

REPORT INFORMATION
  Report Type: Report from Study
  Country: BR (occurrence: BR)
  Receive Date: 20131222
  Receipt Date: 20131222
  Transmission Date: 20140711
  Serious: Yes (Other)
  Sender: FDA-Public Use
  Company Number: PHHY2013BR149921

PATIENT
  Sex: Female
  Weight: 68 kg

DRUGS (3)
  1. ACLASTA [Suspect]
     Indication: OSTEOPENIA
     Dosage: 5 MG, UNK
     Route: 042
     Dates: start: 20131216
  2. RIVOTRIL [Concomitant]
     Dosage: UNK UKN, UNK
  3. TORAGESIC [Concomitant]
     Dosage: UNK UKN, UNK
     Dates: start: 20131217

REACTIONS (3)
  - Infective tenosynovitis [Recovering/Resolving]
  - Musculoskeletal pain [Recovering/Resolving]
  - Dyspnoea [Recovering/Resolving]
